FAERS Safety Report 5065132-6 (Version None)
Quarter: 2006Q3

REPORT INFORMATION
  Report Type: 
  Country: None (occurrence: None)
  Receive Date: 20060725
  Receipt Date: 20060707
  Transmission Date: 20061208
  Serious: Yes (Hospitalization, Disabling)
  Sender: FDA-Public Use
  Company Number: FR200607000888

PATIENT
  Age: 48 Year
  Sex: Female

DRUGS (6)
  1. FORTEO [Suspect]
     Indication: OSTEOPOROSIS
     Dosage: SEE IMAGE
     Route: 058
     Dates: start: 20050516, end: 20051201
  2. FORTEO [Suspect]
     Indication: OSTEOPOROSIS
     Dosage: SEE IMAGE
     Route: 058
     Dates: start: 20060101
  3. FORTEO [Concomitant]
  4. POTASSIUM CHLORIDE [Concomitant]
  5. OROCAL D(3) /MON/(CALCIUM CARBONATE, COLECALCIFEROL) [Concomitant]
  6. CORTANCYL /FRA/ (PREDNISONE) [Concomitant]

REACTIONS (5)
  - BLINDNESS [None]
  - DEPRESSION [None]
  - HYPERCHOLESTEROLAEMIA [None]
  - OPTIC NERVE DISORDER [None]
  - OPTIC NEURITIS RETROBULBAR [None]
